FAERS Safety Report 7655971-7 (Version None)
Quarter: 2011Q3

REPORT INFORMATION
  Report Type: 
  Country: None (occurrence: None)
  Receive Date: 20110801
  Receipt Date: 20110718
  Transmission Date: 20111222
  Serious: Yes (Hospitalization)
  Sender: FDA-Public Use
  Company Number: 0180082

PATIENT
  Age: 71 Year
  Sex: Female
  Weight: 49.8957 kg

DRUGS (21)
  1. ATENOLOL [Concomitant]
  2. PEPCID [Suspect]
     Dosage: 20 MG/1X/PO
     Route: 048
     Dates: start: 20110704, end: 20110704
  3. ASPIRIN [Suspect]
     Dosage: 80 MG/1X/PO
     Route: 048
     Dates: start: 20110704, end: 20110704
  4. TAB CHOLECALCIFEROL 2800 IU [Suspect]
     Indication: MEDICAL DIET
     Dosage: 5600 IU/WKY/PO
     Route: 048
     Dates: start: 20080125
  5. TAB BLINDED THERAPY [Suspect]
     Indication: OSTEOPOROSIS POSTMENOPAUSAL
     Dosage: 1 TAB/WKY/PO
     Route: 048
     Dates: start: 20090710, end: 20100108
  6. TAB BLINDED THERAPY [Suspect]
     Indication: OSTEOPOROSIS POSTMENOPAUSAL
     Dosage: 1 TAB/WKY/PO
     Route: 048
     Dates: start: 20080926, end: 20090207
  7. TAB BLINDED THERAPY [Suspect]
     Indication: OSTEOPOROSIS POSTMENOPAUSAL
     Dosage: 1 TAB/WKY/PO
     Route: 048
     Dates: start: 20090220, end: 20090626
  8. TAB BLINDED THERAPY [Suspect]
     Indication: OSTEOPOROSIS POSTMENOPAUSAL
     Dosage: 1 TAB/WKY/PO
     Route: 048
     Dates: start: 20100122
  9. TAB BLINDED THERAPY [Suspect]
     Indication: OSTEOPOROSIS POSTMENOPAUSAL
     Dosage: 1 TAB/WKY/PO
     Route: 048
     Dates: start: 20080217, end: 20080912
  10. CALCIUM CARBONATE [Suspect]
     Indication: ROUTINE HEALTH MAINTENANCE
     Dosage: 600 MG/BID/PO
     Route: 048
     Dates: start: 20080125
  11. ASPIRIN [Concomitant]
  12. METOPROLOL TARTRATE [Suspect]
     Dosage: 12.5 MG/1X/PO
     Route: 048
     Dates: start: 20110704, end: 20110704
  13. METFORMIN HCL [Concomitant]
  14. RIVASTIGMINE [Suspect]
     Dosage: 4.5 MG/1X/PO
     Route: 048
     Dates: start: 20110704, end: 20110704
  15. UREA CREAM [Concomitant]
  16. DILTIAZEM HYDROCHLORIDE [Concomitant]
  17. INDAPAMIDE [Concomitant]
  18. LOSARTAN POTASSIUM [Concomitant]
  19. ISOSORBIDE MONONITRATE [Suspect]
     Dosage: 20 MG/1X/PO
     Route: 048
     Dates: start: 20110704, end: 20110704
  20. PYRIDOXINE HCL [Suspect]
     Dosage: 50 MG/1X/PO
     Route: 048
     Dates: start: 20110704, end: 20110704
  21. AMLODIPINE BESYLATE [Concomitant]

REACTIONS (14)
  - DIZZINESS [None]
  - VOMITING [None]
  - MEAN CELL VOLUME DECREASED [None]
  - OEDEMA PERIPHERAL [None]
  - WRONG DRUG ADMINISTERED [None]
  - RASH [None]
  - MUSCLE STRAIN [None]
  - BLOOD GLUCOSE INCREASED [None]
  - ARTHROPOD STING [None]
  - HAEMATOCRIT DECREASED [None]
  - GASTRITIS [None]
  - HAEMOGLOBIN DECREASED [None]
  - HYPERLIPIDAEMIA [None]
  - MEAN CELL HAEMOGLOBIN DECREASED [None]
